FAERS Safety Report 16272814 (Version 2)
Quarter: 2019Q4

REPORT INFORMATION
  Report Type: Spontaneous
  Country: US (occurrence: US)
  Receive Date: 20190503
  Receipt Date: 20191105
  Transmission Date: 20200122
  Serious: No
  Sender: FDA-Public Use
  Company Number: US-RADIUS HEALTH INC.-2018US002955

PATIENT
  Sex: Female

DRUGS (1)
  1. TYMLOS [Suspect]
     Active Substance: ABALOPARATIDE
     Indication: OSTEOPOROSIS POSTMENOPAUSAL
     Dosage: 80MCG, ONCE A DAY
     Route: 058
     Dates: start: 201802, end: 20190714

REACTIONS (8)
  - Product dose omission [Unknown]
  - Bone pain [Unknown]
  - Chills [Unknown]
  - Feeling cold [Unknown]
  - Arthralgia [Unknown]
  - Nausea [Unknown]
  - Dizziness [Unknown]
  - Blood calcium increased [Unknown]
